FAERS Safety Report 6828619-9 (Version None)
Quarter: 2010Q3

REPORT INFORMATION
  Report Type: 
  Country: None (occurrence: None)
  Receive Date: 20100702
  Receipt Date: 20100622
  Transmission Date: 20110219
  Serious: Yes (Other)
  Sender: FDA-Public Use
  Company Number: 014537

PATIENT
  Age: 54 Year
  Sex: Male

DRUGS (1)
  1. ROTIGOTINE [Suspect]
     Indication: PARKINSON'S DISEASE
     Dosage: (4 MG FOR 4 WEEKS TRANSDERMAL)
     Route: 062

REACTIONS (4)
  - FEMUR FRACTURE [None]
  - IMPULSIVE BEHAVIOUR [None]
  - ROAD TRAFFIC ACCIDENT [None]
  - WRIST FRACTURE [None]
